FAERS Safety Report 9233602 (Version 1)
Quarter: 2013Q2

REPORT INFORMATION
  Report Type: Spontaneous
  Country: US (occurrence: US)
  Receive Date: 20130416
  Receipt Date: 20130416
  Transmission Date: 20140414
  Serious: No
  Sender: FDA-Public Use
  Company Number: US-BANPHARM-20120501

PATIENT
  Age: 93 Year
  Sex: Male

DRUGS (1)
  1. ALEVE LIQUID GELS 220MG [Suspect]
     Indication: ARTHRITIS
     Dosage: 1 DF, QD,
     Route: 048
     Dates: start: 20121218, end: 20121219

REACTIONS (1)
  - Pruritus generalised [Recovered/Resolved]
